FAERS Safety Report 7958244-8 (Version None)
Quarter: 2011Q4

REPORT INFORMATION
  Report Type: 
  Country: None (occurrence: None)
  Receive Date: 20111205
  Receipt Date: 20111019
  Transmission Date: 20120403
  Serious: Yes (Other)
  Sender: FDA-Public Use
  Company Number: US-ROCHE-1011727

PATIENT
  Sex: Male
  Weight: 101.2 kg

DRUGS (6)
  1. LORAZEPAM [Concomitant]
     Route: 048
     Dates: start: 20081201
  2. PEGINTERFERON ALFA-2A [Suspect]
     Indication: HEPATITIS C
     Route: 058
  3. COPEGUS [Suspect]
     Indication: HEPATITIS C
     Route: 048
  4. AMBIEN [Concomitant]
     Route: 048
     Dates: start: 20081201
  5. BLINDED INX-189 (HCV POLYMERASE INHIBITOR) [Suspect]
     Indication: HEPATITIS C
     Route: 048
  6. BACLOFEN [Concomitant]
     Route: 048
     Dates: start: 20081201

REACTIONS (1)
  - TRANSIENT ISCHAEMIC ATTACK [None]
